FAERS Safety Report 22117304 (Version 1)
Quarter: 2023Q1

REPORT INFORMATION
  Report Type: Spontaneous
  Country: US (occurrence: US)
  Receive Date: 20230320
  Receipt Date: 20230320
  Transmission Date: 20230417
  Serious: Yes (Other)
  Sender: FDA-Public Use
  Company Number: US-UPSHER-SMITH LABORATORIES, LLC-2023USL00190

PATIENT
  Age: 36 Year
  Sex: Male

DRUGS (2)
  1. TESTOSTERONE [Suspect]
     Active Substance: TESTOSTERONE
     Indication: Transgender hormonal therapy
     Dosage: 0.5 MG, 1X/WEEK
     Route: 030
  2. ANDROGEL [Suspect]
     Active Substance: TESTOSTERONE
     Indication: Transgender hormonal therapy
     Dosage: 20.25 MG/ACT (TWICE DAILY, ALSO REPORTED AS EVERY OTHER DAY)
     Route: 061

REACTIONS (1)
  - Idiopathic intracranial hypertension [Recovered/Resolved]
